FAERS Safety Report 16009810 (Version 1)
Quarter: 2019Q1

REPORT INFORMATION
  Report Type: Spontaneous
  Country: FR (occurrence: FR)
  Receive Date: 20190225
  Receipt Date: 20190225
  Transmission Date: 20190418
  Serious: Yes (Hospitalization)
  Sender: FDA-Public Use
  Company Number: FR-ORION CORPORATION ORION PHARMA-19_00005567

PATIENT
  Age: 49 Year
  Sex: Female
  Weight: 71 kg

DRUGS (10)
  1. EUPRESSYL [Concomitant]
     Active Substance: URAPIDIL
     Route: 065
  2. SPECIAFOLDINE [Concomitant]
     Active Substance: FOLIC ACID
     Route: 065
  3. TOPALGIC [Concomitant]
     Route: 065
  4. STAGID [Concomitant]
     Active Substance: METFORMIN PAMOATE
     Dosage: STRENGTH: 700 MG
     Route: 065
  5. PARACETAMOL [Concomitant]
     Active Substance: ACETAMINOPHEN
     Route: 065
  6. METHOTREXATE (TRADE NAME UNKNOWN) [Suspect]
     Active Substance: METHOTREXATE
     Indication: RHEUMATOID ARTHRITIS
     Route: 048
     Dates: start: 2004, end: 201703
  7. TRULICITY [Concomitant]
     Active Substance: DULAGLUTIDE
     Route: 065
  8. RASILEZ [Concomitant]
     Active Substance: ALISKIREN
     Route: 065
  9. REMICADE [Suspect]
     Active Substance: INFLIXIMAB
     Indication: RHEUMATOID ARTHRITIS
     Dosage: DOSE: 3MG/KG/8 ?STRENGTH:100 MG
     Route: 042
     Dates: start: 20071116, end: 20161219
  10. OGAST [Concomitant]
     Active Substance: LANSOPRAZOLE
     Route: 065

REACTIONS (2)
  - Invasive ductal breast carcinoma [Recovering/Resolving]
  - B-cell lymphoma [Recovering/Resolving]

NARRATIVE: CASE EVENT DATE: 201701
